FAERS Safety Report 4565698-6 (Version None)
Quarter: 2005Q1

REPORT INFORMATION
  Report Type: 
  Country: None (occurrence: None)
  Receive Date: 20050126
  Receipt Date: 20050111
  Transmission Date: 20050727
  Serious: Yes (Hospitalization)
  Sender: FDA-Public Use
  Company Number: 205625

PATIENT
  Age: 35 Year
  Sex: Female

DRUGS (6)
  1. AVONEX [Suspect]
     Indication: MULTIPLE SCLEROSIS
     Dosage: 30 UG QW IM
     Route: 030
     Dates: start: 20040630
  2. BUSPAR [Concomitant]
  3. VALIUM [Concomitant]
  4. LEXAPRO [Concomitant]
  5. ELAVIL [Concomitant]
  6. NEURONTIN [Concomitant]

REACTIONS (3)
  - ABDOMINAL PAIN [None]
  - HEMIPARESIS [None]
  - URINARY RETENTION [None]
